FAERS Safety Report 15753073 (Version 1)
Quarter: 2018Q4

REPORT INFORMATION
  Report Type: Report from Study
  Country: ES (occurrence: ES)
  Receive Date: 20181221
  Receipt Date: 20181221
  Transmission Date: 20190205
  Serious: Yes (Disabling)
  Sender: FDA-Public Use
  Company Number: ES-TEVA-2018-ES-988934

PATIENT
  Age: 50 Year
  Sex: Female

DRUGS (6)
  1. TAMOXIFENO (733A) [Suspect]
     Active Substance: TAMOXIFEN
     Indication: BREAST CANCER
     Route: 065
     Dates: start: 20040112, end: 20081231
  2. DOCETAXEL (7394A) [Suspect]
     Active Substance: DOCETAXEL
     Indication: BREAST CANCER
     Dosage: SP
     Route: 042
     Dates: start: 20090201, end: 20090501
  3. CICLOFOSFAMIDA (120A) [Suspect]
     Active Substance: CYCLOPHOSPHAMIDE
     Indication: BREAST CANCER
     Dosage: 600MG/M2 X 21 DIAS X 4 CICLOS
     Route: 042
     Dates: start: 20030902, end: 20031202
  4. GEMCITABINA (7314A) [Suspect]
     Active Substance: GEMCITABINE HYDROCHLORIDE
     Indication: BREAST CANCER
     Dosage: SP
     Route: 065
     Dates: start: 20090201, end: 20090501
  5. IRINOTECAN [Suspect]
     Active Substance: IRINOTECAN
     Indication: BREAST CANCER
     Dosage: SP
     Route: 065
     Dates: start: 20090201, end: 20090501
  6. ADRIAMYCIN [Suspect]
     Active Substance: DOXORUBICIN HYDROCHLORIDE
     Indication: BREAST CANCER
     Dosage: 60MG/M2 X 21 DIAS X 4 CICLOS
     Route: 042
     Dates: start: 20030902, end: 20031202

REACTIONS (1)
  - Left ventricular dysfunction [Recovered/Resolved with Sequelae]

NARRATIVE: CASE EVENT DATE: 201605
